FAERS Safety Report 25951334 (Version 1)
Quarter: 2025Q4

REPORT INFORMATION
  Report Type: Spontaneous
  Country: GB (occurrence: GB)
  Receive Date: 20251023
  Receipt Date: 20251023
  Transmission Date: 20260117
  Serious: Yes (Other)
  Sender: RANBAXY
  Company Number: GB-MHRA-TPP20534630C8023340YC1759741976110

PATIENT
  Age: 73 Year
  Sex: Female
  Weight: 96 kg

DRUGS (13)
  1. CODEINE [Suspect]
     Active Substance: CODEINE
     Indication: Ill-defined disorder
     Dosage: 15 MILLIGRAM, TAKE UP TO ONE 4 TIMES/DAY
     Route: 065
     Dates: start: 20250930
  2. SHARPSGUARD [Concomitant]
     Indication: Ill-defined disorder
     Dosage: USE AS DIRECTED
     Route: 065
     Dates: start: 20220615
  3. ATORVASTATIN [Concomitant]
     Active Substance: ATORVASTATIN
     Indication: Ill-defined disorder
     Dosage: TAKE ONE DAILY TO LOWER CHOLESTEROL
     Route: 065
     Dates: start: 20250213
  4. BISOPROLOL [Concomitant]
     Active Substance: BISOPROLOL
     Indication: Ill-defined disorder
     Dosage: TAKE ONE DAILY
     Route: 065
     Dates: start: 20250213
  5. CALCIUM CARBONATE [Concomitant]
     Active Substance: CALCIUM CARBONATE
     Indication: Ill-defined disorder
     Dosage: 1 TAB BD
     Route: 065
     Dates: start: 20250213
  6. FLUOXETINE [Concomitant]
     Active Substance: FLUOXETINE HYDROCHLORIDE
     Indication: Ill-defined disorder
     Dosage: TAKE THREE DAILY TO PREVENT LOW MOOD.
     Route: 065
     Dates: start: 20250213
  7. GLUCORX FINEPOINT [Concomitant]
     Indication: Ill-defined disorder
     Dosage: USE AS DIRECTED
     Route: 065
     Dates: start: 20250213
  8. Hylo forte [Concomitant]
     Indication: Ill-defined disorder
     Dosage: ONE  DROP  QDS  EACH EYE
     Route: 065
     Dates: start: 20250213
  9. RAMIPRIL [Concomitant]
     Active Substance: RAMIPRIL
     Indication: Ill-defined disorder
     Dosage: ONE TO BE TAKEN DAILY
     Route: 065
     Dates: start: 20250213
  10. EDOXABAN [Concomitant]
     Active Substance: EDOXABAN
     Indication: Ill-defined disorder
     Dosage: 1 EVERY DAY
     Route: 065
     Dates: start: 20250509
  11. FREESTYLE LIBRE 2 PLUS [Concomitant]
     Indication: Ill-defined disorder
     Dosage: USE AS DIRECTED
     Route: 065
     Dates: start: 20250313
  12. LANTUS [Concomitant]
     Active Substance: INSULIN GLARGINE
     Indication: Ill-defined disorder
     Dosage: USE AS DIRECTED
     Route: 065
     Dates: start: 20250313
  13. NOVORAPID [Concomitant]
     Active Substance: INSULIN ASPART
     Indication: Ill-defined disorder
     Dosage: USE AS DIRECTED   (INSULIN ASPART SHORT ACTING,...
     Route: 065
     Dates: start: 20250313

REACTIONS (1)
  - Gastrointestinal disorder [Recovered/Resolved]
